FAERS Safety Report 18882254 (Version 1)
Quarter: 2021Q1

REPORT INFORMATION
  Report Type: Spontaneous
  Country: US (occurrence: US)
  Receive Date: 20210211
  Receipt Date: 20210211
  Transmission Date: 20210420
  Serious: No
  Sender: FDA-Public Use
  Company Number: US-PERRIGO-20US002498

PATIENT
  Sex: Female
  Weight: 67.12 kg

DRUGS (6)
  1. CETIRIZINE HYDROCHLORIDE. [Suspect]
     Active Substance: CETIRIZINE HYDROCHLORIDE
     Dosage: 10 MG, QD
     Route: 048
     Dates: start: 201910
  2. CETIRIZINE HYDROCHLORIDE. [Suspect]
     Active Substance: CETIRIZINE HYDROCHLORIDE
     Dosage: 10 MG, TWICE
     Route: 048
     Dates: start: 20200212, end: 20200212
  3. CETIRIZINE HYDROCHLORIDE. [Suspect]
     Active Substance: CETIRIZINE HYDROCHLORIDE
     Indication: HYPERSENSITIVITY
     Dosage: 10 MG, PRN
     Route: 048
     Dates: start: 2018, end: 201901
  4. IBUPROFEN. [Concomitant]
     Active Substance: IBUPROFEN
     Indication: PAIN
     Dosage: UNK
     Route: 065
  5. IBUPROFEN. [Concomitant]
     Active Substance: IBUPROFEN
     Indication: HEADACHE
  6. ATIVAN [Concomitant]
     Active Substance: LORAZEPAM
     Indication: STRESS
     Dosage: UNK
     Route: 065

REACTIONS (3)
  - Expired product administered [Recovered/Resolved]
  - Product administered to patient of inappropriate age [Unknown]
  - Therapeutic product effect variable [Recovered/Resolved]

NARRATIVE: CASE EVENT DATE: 2018
